FAERS Safety Report 9693328 (Version 2)
Quarter: 2013Q4

REPORT INFORMATION
  Report Type: Spontaneous
  Country: US (occurrence: US)
  Receive Date: 20131118
  Receipt Date: 20131212
  Transmission Date: 20140711
  Serious: Yes (Death)
  Sender: FDA-Public Use
  Company Number: US-ROCHE-1304046

PATIENT
  Age: 79 Year
  Sex: Male

DRUGS (8)
  1. XELODA [Suspect]
     Indication: GASTRIC CANCER
     Dosage: 3 TABS BY MOUTH Q12H FOR 10 DAYS ON OUT OF Q 14D
     Route: 048
  2. XELODA [Suspect]
     Indication: RECTAL CANCER
  3. AMLODIPINE [Concomitant]
  4. METFORMIN [Concomitant]
  5. PRILOSEC [Concomitant]
  6. SUCRALFATE [Concomitant]
  7. SIMVASTATIN [Concomitant]
  8. FOLIC ACID [Concomitant]

REACTIONS (1)
  - Metastatic gastric cancer [Fatal]
